FAERS Safety Report 5189534-2 (Version None)
Quarter: 2006Q4

REPORT INFORMATION
  Report Type: 
  Country: None (occurrence: None)
  Receive Date: 20061218
  Receipt Date: 20061205
  Transmission Date: 20070319
  Serious: Yes (Hospitalization, Other)
  Sender: FDA-Public Use
  Company Number: 2006150852

PATIENT
  Sex: Female
  Weight: 53.5244 kg

DRUGS (6)
  1. SUTENT [Suspect]
     Indication: HEPATIC NEOPLASM MALIGNANT
     Dosage: 50 MG (50 MG, 1 IN 1 D)
  2. OTHER HYPNOTICS AND SEDATIVES [Concomitant]
  3. VICODIN [Concomitant]
  4. ANALGESICS [Concomitant]
  5. AVAPRO [Concomitant]
  6. MORPHINE [Concomitant]

REACTIONS (9)
  - BACK PAIN [None]
  - BLADDER DISORDER [None]
  - CONSTIPATION [None]
  - DIARRHOEA [None]
  - DRUG INEFFECTIVE [None]
  - HYPERTENSION [None]
  - NAUSEA [None]
  - PAIN [None]
  - PAIN IN EXTREMITY [None]
